FAERS Safety Report 7289026-0 (Version None)
Quarter: 2011Q1

REPORT INFORMATION
  Report Type: 
  Country: None (occurrence: None)
  Receive Date: 20110201
  Receipt Date: 20110117
  Transmission Date: 20110831
  Serious: Yes (Other)
  Sender: FDA-Public Use
  Company Number: 2010SP051020

PATIENT
  Age: 46 Year
  Sex: Female

DRUGS (4)
  1. RIBASPHERE [Suspect]
     Indication: HEPATITIS C
     Dosage: 400 MG BID, PO
     Route: 048
     Dates: start: 20100731
  2. RIBAVIRIN [Suspect]
     Indication: HEPATITIS C
     Dosage: PO
     Route: 048
     Dates: start: 20090101, end: 20090101
  3. PEG-INTRON [Suspect]
     Indication: HEPATITIS C
     Dosage: SC
     Route: 058
     Dates: start: 20100731
  4. PEG-INTRON [Suspect]
     Indication: HEPATITIS C
     Dosage: SC
     Route: 058
     Dates: start: 20090101, end: 20090101

REACTIONS (24)
  - DYSPNOEA [None]
  - INFLUENZA LIKE ILLNESS [None]
  - PAROSMIA [None]
  - PRURITUS [None]
  - ALOPECIA [None]
  - DISEASE RECURRENCE [None]
  - DIABETES MELLITUS [None]
  - INCORRECT ROUTE OF DRUG ADMINISTRATION [None]
  - CHOLELITHIASIS [None]
  - ABASIA [None]
  - VIOLENCE-RELATED SYMPTOM [None]
  - BREAST DISORDER [None]
  - ABDOMINAL DISTENSION [None]
  - HEPATITIS C [None]
  - ANGER [None]
  - POSTURE ABNORMAL [None]
  - CONDITION AGGRAVATED [None]
  - WRONG TECHNIQUE IN DRUG USAGE PROCESS [None]
  - MEMORY IMPAIRMENT [None]
  - KIDNEY INFECTION [None]
  - FLATULENCE [None]
  - BACK PAIN [None]
  - IRRITABILITY [None]
  - COMA [None]
